FAERS Safety Report 19220207 (Version 2)
Quarter: 2021Q2

REPORT INFORMATION
  Report Type: Report from Study
  Country: US (occurrence: US)
  Receive Date: 20210506
  Receipt Date: 20210611
  Transmission Date: 20210717
  Serious: Yes (Death, Other)
  Sender: FDA-Public Use
  Company Number: US-ACADIA PHARMACEUTICALS INC.-ACA-2021-PIM-001591

PATIENT
  Sex: Male

DRUGS (14)
  1. NUPLAZID [Suspect]
     Active Substance: PIMAVANSERIN TARTRATE
     Indication: PARKINSON^S DISEASE
     Dosage: 34 MILLIGRAM, QD
     Route: 048
     Dates: start: 20200713
  2. FOLIC ACID. [Concomitant]
     Active Substance: FOLIC ACID
     Indication: SUPPLEMENTATION THERAPY
     Dosage: 1 MILLIGRAM, QD
     Route: 048
     Dates: start: 20180807
  3. FOLIC ACID. [Concomitant]
     Active Substance: FOLIC ACID
     Indication: PARKINSON^S DISEASE
  4. BRUKINSA [Concomitant]
     Active Substance: ZANUBRUTINIB
     Dosage: 2 CAP BID
  5. LAXATIVE [BISACODYL] [Concomitant]
     Active Substance: BISACODYL
     Dosage: 1 TAB, QD, PRN
  6. RYTARY [Concomitant]
     Active Substance: CARBIDOPA\LEVODOPA
     Indication: PARKINSON^S DISEASE
     Dosage: 48.75?195 MG, 2 TABS, 4 TIMES A DAY
     Route: 048
     Dates: start: 20181218
  7. BUSPIRONE HCL [Concomitant]
     Active Substance: BUSPIRONE HYDROCHLORIDE
     Indication: GENERALISED ANXIETY DISORDER
     Dosage: 10 MILLIGRAM BID
     Route: 048
     Dates: start: 20200518
  8. MEMANTINE HCL [Concomitant]
     Active Substance: MEMANTINE
     Indication: DEMENTIA
     Dosage: 10 MILLIGRAM BID
     Route: 048
     Dates: start: 20190130
  9. CARBIDOPA/LEVODOPA [Concomitant]
     Active Substance: CARBIDOPA\LEVODOPA
     Indication: PARKINSON^S DISEASE
     Dosage: 25?100 MG, 1 TAB TID, PRN
     Route: 048
     Dates: start: 20181218
  10. PROSTATE SUPPORT [Concomitant]
     Dosage: 1 TAB TID
  11. OMEGA 3 ACID ETHYL ESTERS [Concomitant]
     Active Substance: OMEGA-3-ACID ETHYL ESTERS
     Dosage: 1 GM, 1 CAP TID
     Route: 048
     Dates: start: 20190711
  12. NUPLAZID [Suspect]
     Active Substance: PIMAVANSERIN TARTRATE
     Indication: HALLUCINATION
  13. MEMANTINE HCL [Concomitant]
     Active Substance: MEMANTINE
     Indication: PARKINSON^S DISEASE
  14. MEMANTINE HCL [Concomitant]
     Active Substance: MEMANTINE
     Indication: BEHAVIOUR DISORDER

REACTIONS (1)
  - Completed suicide [Recovered/Resolved]
